FAERS Safety Report 19256838 (Version 10)
Quarter: 2023Q2

REPORT INFORMATION
  Report Type: Spontaneous
  Country: US (occurrence: US)
  Receive Date: 20210513
  Receipt Date: 20230608
  Transmission Date: 20230722
  Serious: Yes (Other)
  Sender: FDA-Public Use
  Company Number: US-PFIZER INC-2021444971

PATIENT
  Age: 62 Year
  Sex: Male
  Weight: 81.65 kg

DRUGS (2)
  1. BENEFIX [Suspect]
     Active Substance: COAGULATION FACTOR IX RECOMBINANT HUMAN\ISOPROPYL ALCOHOL
     Indication: Haemorrhage prophylaxis
     Dosage: UNK
  2. BENEFIX [Suspect]
     Active Substance: COAGULATION FACTOR IX RECOMBINANT HUMAN\ISOPROPYL ALCOHOL
     Indication: Haemorrhage
     Dosage: 5900 IU, AS NEEDED (3000 IU FOR TOTAL OF 5900 IU FOR BLEEDING AS PHYSICIAN DIRECT BY PHYSICIAN)

REACTIONS (5)
  - Osteomyelitis [Unknown]
  - Internal haemorrhage [Unknown]
  - Productive cough [Unknown]
  - Cough [Unknown]
  - COVID-19 [Unknown]

NARRATIVE: CASE EVENT DATE: 20220301
